FAERS Safety Report 8317653-8 (Version None)
Quarter: 2012Q2

REPORT INFORMATION
  Report Type: 
  Country: None (occurrence: None)
  Receive Date: 20120427
  Receipt Date: 20090824
  Transmission Date: 20120825
  Serious: No
  Sender: FDA-Public Use
  Company Number: US-TEVA-2009007970

PATIENT
  Age: 83 Year
  Sex: Male

DRUGS (17)
  1. SINGULAIR [Concomitant]
  2. HYZAAR [Concomitant]
  3. ADVAIR DISKUS 100/50 [Concomitant]
  4. POTASSIUM CHLORIDE [Concomitant]
  5. CYMBALTA [Concomitant]
  6. SPIRIVA [Concomitant]
  7. WARFARIN SODIUM [Concomitant]
  8. AMBIEN [Concomitant]
  9. ASPIRIN [Concomitant]
  10. FLOMAX [Concomitant]
  11. SOTALOL HCL [Concomitant]
  12. NUVIGIL [Suspect]
     Indication: SLEEP APNOEA SYNDROME
     Dosage: 150 MILLIGRAM;
     Route: 048
     Dates: start: 20090625, end: 20090626
  13. ZYRTEC [Concomitant]
  14. LIPITOR [Concomitant]
  15. LASIX [Concomitant]
  16. THEOPHYLLINE [Concomitant]
  17. COMBIVENT [Concomitant]

REACTIONS (4)
  - VOMITING [None]
  - TREMOR [None]
  - NAUSEA [None]
  - NERVOUSNESS [None]
